FAERS Safety Report 12248565 (Version 1)
Quarter: 2016Q2

REPORT INFORMATION
  Report Type: Spontaneous
  Country: GB (occurrence: GB)
  Receive Date: 20160408
  Receipt Date: 20160408
  Transmission Date: 20160815
  Serious: Yes (Other)
  Sender: FDA-Public Use
  Company Number: GB-FERRINGPH-2016FE01477

PATIENT

DRUGS (1)
  1. PICOLAX [Suspect]
     Active Substance: CITRIC ACID MONOHYDRATE\MAGNESIUM OXIDE\SODIUM PICOSULFATE
     Indication: BOWEL PREPARATION
     Route: 065
     Dates: start: 20160218

REACTIONS (3)
  - Dizziness [Unknown]
  - Drug administration error [Unknown]
  - Malaise [Unknown]

NARRATIVE: CASE EVENT DATE: 20160218
